FAERS Safety Report 8869912 (Version 2)
Quarter: 2013Q1

REPORT INFORMATION
  Report Type: Spontaneous
  Country: US (occurrence: US)
  Receive Date: 20121028
  Receipt Date: 20130116
  Transmission Date: 20140127
  Serious: Yes (Other)
  Sender: FDA-Public Use
  Company Number: US-US-EMD SERONO, INC.-7149448

PATIENT
  Sex: Male
  Weight: 86 kg

DRUGS (4)
  1. EGRIFTA [Suspect]
     Indication: LIPODYSTROPHY ACQUIRED
     Dates: start: 2011, end: 2011
  2. EGRIFTA [Suspect]
     Dates: start: 2011
  3. JANUVIA [Concomitant]
     Indication: HYPERGLYCAEMIA
  4. INSULIN [Concomitant]
     Indication: HYPERGLYCAEMIA

REACTIONS (7)
  - Retinal detachment [Unknown]
  - Pancreatic atrophy [Not Recovered/Not Resolved]
  - Hepatomegaly [Not Recovered/Not Resolved]
  - Splenomegaly [Not Recovered/Not Resolved]
  - Weight increased [Unknown]
  - Insomnia [Unknown]
  - Hyperglycaemia [Recovered/Resolved]
